FAERS Safety Report 6388528-9 (Version None)
Quarter: 2009Q4

REPORT INFORMATION
  Report Type: 
  Country: None (occurrence: None)
  Receive Date: 20091005
  Receipt Date: 20091001
  Transmission Date: 20100525
  Serious: Yes (Hospitalization)
  Sender: FDA-Public Use
  Company Number: B0596294A

PATIENT
  Sex: Male
  Weight: 85 kg

DRUGS (6)
  1. AUGMENTIN '125' [Suspect]
     Indication: DERMO-HYPODERMITIS
     Dosage: 625MG THREE TIMES PER DAY
     Route: 065
     Dates: start: 20090902, end: 20090909
  2. ASPIRIN [Concomitant]
     Route: 048
  3. TORSEMIDE [Concomitant]
     Route: 048
  4. OMEPRAZOLE [Concomitant]
     Route: 048
  5. CO-APROVEL [Concomitant]
     Route: 048
  6. UNKNOWN MEDICATION [Concomitant]

REACTIONS (9)
  - ABNORMAL FAECES [None]
  - ALANINE AMINOTRANSFERASE INCREASED [None]
  - ASPARTATE AMINOTRANSFERASE INCREASED [None]
  - BLOOD BILIRUBIN INCREASED [None]
  - C-REACTIVE PROTEIN INCREASED [None]
  - DIARRHOEA [None]
  - GAMMA-GLUTAMYLTRANSFERASE INCREASED [None]
  - JAUNDICE [None]
  - MIXED LIVER INJURY [None]
